FAERS Safety Report 21639188 (Version 1)
Quarter: 2022Q4

REPORT INFORMATION
  Report Type: Spontaneous
  Country: JP (occurrence: JP)
  Receive Date: 20221124
  Receipt Date: 20221124
  Transmission Date: 20230113
  Serious: Yes (Other)
  Sender: FDA-Public Use
  Company Number: JP-MLMSERVICE-20221111-3908739-1

PATIENT
  Age: 38 Year
  Sex: Female

DRUGS (6)
  1. CISPLATIN [Suspect]
     Active Substance: CISPLATIN
     Indication: Metastases to lymph nodes
     Dosage: TRI-WEEKLY CISPLATIN OF 80 MG/M2/DAY FROM 23 WEEKS OF GESTATION,
  2. FLUOROURACIL [Suspect]
     Active Substance: FLUOROURACIL
     Indication: Metastases to lymph nodes
     Dosage: 800 MG/M2/DAY ON DAYS 1-4 IN 35 WEEKS OF GESTATION
  3. CISPLATIN [Suspect]
     Active Substance: CISPLATIN
     Indication: Oesophageal squamous cell carcinoma stage II
     Dosage: 80 MG/M2/DAY ON DAY 1 IN 35 WEEKS OF GESTATION
  4. FLUOROURACIL [Suspect]
     Active Substance: FLUOROURACIL
     Indication: Oesophageal squamous cell carcinoma stage II
     Dosage: 800 MG/M2/DAY ON DAYS 1-4 IN 35 WEEKS OF GESTATION
  5. CISPLATIN [Suspect]
     Active Substance: CISPLATIN
     Indication: Metastases to lymph nodes
     Dosage: TRI-WEEKLY CISPLATIN OF 80 MG/M2/DAY FROM 23 WEEKS OF GESTATION,
  6. CISPLATIN [Suspect]
     Active Substance: CISPLATIN
     Indication: Metastases to lymph nodes
     Dosage: AND COMPLETED IN 30 WEEKS OF GESTATION

REACTIONS (2)
  - Oesophagitis [Unknown]
  - Maternal exposure during pregnancy [Unknown]
